FAERS Safety Report 10956292 (Version 2)
Quarter: 2015Q2

REPORT INFORMATION
  Report Type: Spontaneous
  Country: US (occurrence: US)
  Receive Date: 20150326
  Receipt Date: 20150406
  Transmission Date: 20150821
  Serious: Yes (Other)
  Sender: FDA-Public Use
  Company Number: US-ELI_LILLY_AND_COMPANY-US201503008885

PATIENT
  Age: 54 Year
  Sex: Female

DRUGS (1)
  1. HUMALOG [Suspect]
     Active Substance: INSULIN LISPRO
     Indication: TYPE 1 DIABETES MELLITUS
     Dosage: UNK
     Route: 058

REACTIONS (5)
  - Renal pain [Not Recovered/Not Resolved]
  - Blood glucose increased [Unknown]
  - Oedema peripheral [Not Recovered/Not Resolved]
  - Incorrect product storage [Unknown]
  - Bronchitis [Unknown]

NARRATIVE: CASE EVENT DATE: 201501
